FAERS Safety Report 7148958-4 (Version None)
Quarter: 2010Q4

REPORT INFORMATION
  Report Type: 
  Country: None (occurrence: None)
  Receive Date: 20101209
  Receipt Date: 20101203
  Transmission Date: 20110411
  Serious: Yes (Other)
  Sender: FDA-Public Use
  Company Number: B0688031A

PATIENT
  Sex: Male

DRUGS (2)
  1. SERETIDE [Suspect]
     Indication: ASTHMA
     Route: 065
  2. CONCURRENT MEDICATIONS [Concomitant]

REACTIONS (2)
  - ARTHRALGIA [None]
  - OSTEONECROSIS [None]
